FAERS Safety Report 8669414 (Version 2)
Quarter: 2013Q2

REPORT INFORMATION
  Report Type: Spontaneous
  Country: US (occurrence: US)
  Receive Date: 20120717
  Receipt Date: 20130404
  Transmission Date: 20140414
  Serious: Yes (Other)
  Sender: FDA-Public Use
  Company Number: US-009507513-1207USA003022

PATIENT
  Sex: 0

DRUGS (1)
  1. INDOCIN I.V. [Suspect]
     Route: 042

REACTIONS (1)
  - Bronchopulmonary dysplasia [Unknown]
